FAERS Safety Report 7000759-3 (Version None)
Quarter: 2010Q3

REPORT INFORMATION
  Report Type: 
  Country: None (occurrence: None)
  Receive Date: 20100920
  Receipt Date: 20091218
  Transmission Date: 20110219
  Serious: No
  Sender: FDA-Public Use
  Company Number: US-ASTRAZENECA-2009UW21610

PATIENT
  Age: 15345 Day
  Sex: Female
  Weight: 81.6 kg

DRUGS (3)
  1. SEROQUEL [Suspect]
     Indication: DEPRESSION
     Route: 048
     Dates: start: 20040713, end: 20050101
  2. SEROQUEL [Suspect]
     Indication: BIPOLAR DISORDER
     Route: 048
     Dates: start: 20040713, end: 20050101
  3. ZYPREXA [Concomitant]
     Indication: BIPOLAR DISORDER
     Dates: start: 19970101, end: 20040101

REACTIONS (4)
  - FATIGUE [None]
  - HYPOAESTHESIA [None]
  - TYPE 2 DIABETES MELLITUS [None]
  - WEIGHT INCREASED [None]
